FAERS Safety Report 24278462 (Version 1)
Quarter: 2024Q3

REPORT INFORMATION
  Report Type: Spontaneous
  Country: US (occurrence: None)
  Receive Date: 20240830
  Receipt Date: 20240830
  Transmission Date: 20241017
  Serious: Yes (Other)
  Sender: Public
  Company Number: None

PATIENT
  Age: 74 Year
  Sex: Female
  Weight: 91.17 kg

DRUGS (1)
  1. BEOVU [Suspect]
     Active Substance: BROLUCIZUMAB-DBLL
     Indication: Age-related macular degeneration
     Dates: start: 20200619, end: 20200619

REACTIONS (6)
  - Vision blurred [None]
  - Blindness transient [None]
  - Visual impairment [None]
  - Ocular vascular disorder [None]
  - Pain [None]
  - Headache [None]

NARRATIVE: CASE EVENT DATE: 20200619
